FAERS Safety Report 5092387-4 (Version None)
Quarter: 2006Q3

REPORT INFORMATION
  Report Type: 
  Country: None (occurrence: None)
  Receive Date: 20060825
  Receipt Date: 20060815
  Transmission Date: 20061208
  Serious: Yes (Hospitalization)
  Sender: FDA-Public Use
  Company Number: SPV1-2006-00431

PATIENT
  Age: 22 Year
  Sex: Female

DRUGS (3)
  1. EQUETRO [Suspect]
     Indication: BIPOLAR DISORDER
     Dosage: 200 MG, 2X/DAY:  BID, ORAL
     Route: 048
     Dates: start: 20060801, end: 20060814
  2. EFFEXOR /01233801/ (VENLAFAXINE) [Concomitant]
  3. SEROQUEL /01270901/ (QUETIAPINE) [Concomitant]

REACTIONS (1)
  - CEREBROVASCULAR ACCIDENT [None]
